FAERS Safety Report 6152080-3 (Version None)
Quarter: 2009Q2

REPORT INFORMATION
  Report Type: 
  Country: None (occurrence: None)
  Receive Date: 20090410
  Receipt Date: 20090403
  Transmission Date: 20091009
  Serious: Yes (Hospitalization)
  Sender: FDA-Public Use
  Company Number: US-GILEAD-2009-0021303

PATIENT
  Sex: Female
  Weight: 118.04 kg

DRUGS (23)
  1. LETAIRIS [Suspect]
     Indication: PULMONARY ARTERIAL HYPERTENSION
     Route: 048
     Dates: start: 20081104
  2. TOPROL-XL [Concomitant]
  3. LASIX [Concomitant]
  4. ASPIRIN [Concomitant]
  5. CRESTOR [Concomitant]
  6. LISINOPRIL [Concomitant]
  7. CELLCEPT [Concomitant]
  8. PREDNISONE TAB [Concomitant]
  9. AMITRIPTYLINE HCL [Concomitant]
  10. EFFEXOR XR [Concomitant]
  11. PLAQUENIL [Concomitant]
  12. AMBIEN [Concomitant]
  13. SYNTHROID [Concomitant]
  14. LYRICA [Concomitant]
  15. GLUCOPHAGE [Concomitant]
  16. OXYBUTYNIN CHLORIDE [Concomitant]
  17. MOBIC [Concomitant]
  18. PROAIR HFA [Concomitant]
  19. PRILOSEC [Concomitant]
  20. MIACALCIN [Concomitant]
  21. VITAMIN D [Concomitant]
  22. TRAMADOL [Concomitant]
  23. CALCIUM [Concomitant]

REACTIONS (1)
  - HYPOTENSION [None]
